FAERS Safety Report 10897494 (Version 2)
Quarter: 2015Q2

REPORT INFORMATION
  Report Type: Spontaneous
  Country: US (occurrence: US)
  Receive Date: 20150309
  Receipt Date: 20150626
  Transmission Date: 20150821
  Serious: No
  Sender: FDA-Public Use
  Company Number: US-ASTRAZENECA-2015SE18795

PATIENT
  Sex: Female
  Weight: 115.7 kg

DRUGS (4)
  1. BYDUREON [Suspect]
     Active Substance: EXENATIDE
     Indication: TYPE 2 DIABETES MELLITUS
     Route: 058
     Dates: start: 20130223
  2. BYDUREON [Suspect]
     Active Substance: EXENATIDE
     Indication: ASTHMA
     Route: 058
     Dates: start: 20130223
  3. BYDUREON [Suspect]
     Active Substance: EXENATIDE
     Indication: BRONCHITIS
     Route: 058
     Dates: start: 20130223
  4. METFORMIN [Concomitant]
     Active Substance: METFORMIN HYDROCHLORIDE
     Indication: TYPE 2 DIABETES MELLITUS
     Route: 048

REACTIONS (13)
  - Blood glucose increased [Unknown]
  - Dermatitis [Unknown]
  - Feeling hot [None]
  - Vomiting [Unknown]
  - Obesity [Unknown]
  - Malaise [Unknown]
  - Depression [Unknown]
  - Off label use [Unknown]
  - Type 2 diabetes mellitus [Unknown]
  - Product use issue [Unknown]
  - Bronchitis [Unknown]
  - Intentional product misuse [Unknown]
  - Pruritus generalised [Unknown]
